FAERS Safety Report 11450516 (Version 1)
Quarter: 2015Q3

REPORT INFORMATION
  Report Type: Spontaneous
  Country: US (occurrence: US)
  Receive Date: 20150903
  Receipt Date: 20150903
  Transmission Date: 20151125
  Serious: No
  Sender: FDA-Public Use
  Company Number: US-ROCHE-1018099

PATIENT
  Age: 60 Year
  Sex: Female
  Weight: 175 kg

DRUGS (1)
  1. PEGASYS [Suspect]
     Active Substance: PEGINTERFERON ALFA-2A
     Indication: PRODUCT USED FOR UNKNOWN INDICATION
     Route: 065

REACTIONS (22)
  - Dizziness [Unknown]
  - Vertigo [Unknown]
  - Nausea [Unknown]
  - Vomiting [Unknown]
  - Chest pain [Unknown]
  - Breast tenderness [Unknown]
  - Anal pruritus [Unknown]
  - Dry throat [Unknown]
  - Confusional state [Unknown]
  - Visual impairment [Unknown]
  - Tremor [Unknown]
  - Paranasal sinus discomfort [Unknown]
  - Gingival bleeding [Unknown]
  - Fungal infection [Unknown]
  - Decreased appetite [Unknown]
  - Dry eye [Unknown]
  - Blister [Unknown]
  - Dyspnoea [Unknown]
  - Migraine [Unknown]
  - Quality of life decreased [Unknown]
  - Gait disturbance [Unknown]
  - Sjogren^s syndrome [Unknown]
